FAERS Safety Report 6341599-8 (Version None)
Quarter: 2009Q3

REPORT INFORMATION
  Report Type: 
  Country: None (occurrence: None)
  Receive Date: 20090902
  Receipt Date: 20090902
  Transmission Date: 20100115
  Serious: Yes (Death, Other)
  Sender: FDA-Public Use
  Company Number: None

PATIENT
  Age: 86 Year
  Sex: Female

DRUGS (14)
  1. METRONIDAZOLE [Suspect]
     Indication: PNEUMONIA ASPIRATION
     Dosage: 500 MG TID INTRAVENOUS
     Route: 042
     Dates: start: 20060124
  2. CEFUROXIME [Suspect]
     Indication: PNEUMONIA ASPIRATION
     Dosage: 750 MG TID INTRAVENOUS
     Route: 042
     Dates: start: 20060124
  3. ASPIRIN [Concomitant]
  4. PARACETAMOL [Concomitant]
  5. CALCIUM [Concomitant]
  6. LANSOPRAZOLE [Concomitant]
  7. MADOPAN [Concomitant]
  8. MAGNESIUM HYDROXIDE TAB [Concomitant]
  9. SANDO-K [Concomitant]
  10. NYSTATIN [Concomitant]
  11. VITAMIN D3 [Concomitant]
  12. SENNA [Concomitant]
  13. FLUCONAZOLE [Concomitant]
  14. CETRIZINE [Concomitant]

REACTIONS (1)
  - CLOSTRIDIUM DIFFICILE COLITIS [None]
